FAERS Safety Report 5678365-2 (Version None)
Quarter: 2008Q1

REPORT INFORMATION
  Report Type: 
  Country: None (occurrence: None)
  Receive Date: 20080320
  Receipt Date: 20080310
  Transmission Date: 20080703
  Serious: Yes (Hospitalization)
  Sender: FDA-Public Use
  Company Number: JPI-P-003173

PATIENT
  Age: 48 Year
  Sex: Female

DRUGS (3)
  1. XYREM (OXYBATE SODIUM) (500 MILLIGRAM/MILLITERS, SOLUTION) (SOCIUM OXY [Suspect]
     Indication: RAPID EYE MOVEMENTS SLEEP ABNORMAL
     Dosage: ORAL, 9 GM (4.5 GM, 2 IN 1 D), ORAL
     Route: 048
     Dates: start: 20070101
  2. XYREM (OXYBATE SODIUM) (500 MILLIGRAM/MILLITERS, SOLUTION) (SOCIUM OXY [Suspect]
     Indication: SLEEP DISORDER
     Dosage: ORAL, 9 GM (4.5 GM, 2 IN 1 D), ORAL
     Route: 048
     Dates: start: 20070101
  3. UNSPECIFIED ADRENAL MEDICATION (ALL OTHER THERAPEUTIC PRODUCTS) [Suspect]
     Indication: ADRENAL DISORDER

REACTIONS (3)
  - ADRENAL INSUFFICIENCY [None]
  - CONDITION AGGRAVATED [None]
  - HYPOTHYROIDISM [None]
